FAERS Safety Report 25021778 (Version 1)
Quarter: 2025Q1

REPORT INFORMATION
  Report Type: Spontaneous
  Country: CA (occurrence: CA)
  Receive Date: 20250228
  Receipt Date: 20250228
  Transmission Date: 20250409
  Serious: Yes (Death, Other)
  Sender: STRIDES
  Company Number: CA-STRIDES ARCOLAB LIMITED-2024SP010992

PATIENT
  Age: 74 Year
  Sex: Female

DRUGS (12)
  1. FLUCYTOSINE [Suspect]
     Active Substance: FLUCYTOSINE
     Indication: Meningoencephalitis amoebic
     Route: 065
  2. FLUCYTOSINE [Suspect]
     Active Substance: FLUCYTOSINE
     Indication: Acanthamoeba infection
  3. AZITHROMYCIN [Suspect]
     Active Substance: AZITHROMYCIN
     Indication: Meningoencephalitis amoebic
     Route: 065
  4. AZITHROMYCIN [Suspect]
     Active Substance: AZITHROMYCIN
     Indication: Acanthamoeba infection
  5. COTRIMOXAZOLE [Suspect]
     Active Substance: SULFAMETHOXAZOLE\TRIMETHOPRIM
     Indication: Meningoencephalitis amoebic
     Route: 065
  6. COTRIMOXAZOLE [Suspect]
     Active Substance: SULFAMETHOXAZOLE\TRIMETHOPRIM
     Indication: Acanthamoeba infection
  7. PENTAMIDINE [Suspect]
     Active Substance: PENTAMIDINE
     Indication: Meningoencephalitis amoebic
     Route: 042
  8. PENTAMIDINE [Suspect]
     Active Substance: PENTAMIDINE
     Indication: Acanthamoeba infection
  9. FLUCONAZOLE [Suspect]
     Active Substance: FLUCONAZOLE
     Indication: Meningoencephalitis amoebic
     Route: 065
  10. FLUCONAZOLE [Suspect]
     Active Substance: FLUCONAZOLE
     Indication: Acanthamoeba infection
  11. MILTEFOSINE [Suspect]
     Active Substance: MILTEFOSINE
     Indication: Meningoencephalitis amoebic
     Route: 065
  12. MILTEFOSINE [Suspect]
     Active Substance: MILTEFOSINE
     Indication: Acanthamoeba infection

REACTIONS (2)
  - Condition aggravated [Fatal]
  - Drug ineffective for unapproved indication [Fatal]
